FAERS Safety Report 14851296 (Version 2)
Quarter: 2018Q2

REPORT INFORMATION
  Report Type: Spontaneous
  Country: US (occurrence: US)
  Receive Date: 20180507
  Receipt Date: 20180628
  Transmission Date: 20180711
  Serious: No
  Sender: FDA-Public Use
  Company Number: US-BRISTOL-MYERS SQUIBB COMPANY-BMS-2018-041305

PATIENT
  Age: 71 Year
  Sex: Male

DRUGS (1)
  1. OPDIVO [Suspect]
     Active Substance: NIVOLUMAB
     Indication: HEAD AND NECK CANCER
     Dosage: 318 MG, Q2WK
     Route: 042
     Dates: start: 20170624

REACTIONS (3)
  - Dry mouth [Not Recovered/Not Resolved]
  - Dysphagia [Unknown]
  - Thirst [Unknown]

NARRATIVE: CASE EVENT DATE: 20171127
